FAERS Safety Report 16908045 (Version 4)
Quarter: 2020Q2

REPORT INFORMATION
  Report Type: Spontaneous
  Country: TR (occurrence: TR)
  Receive Date: 20191011
  Receipt Date: 20200407
  Transmission Date: 20200713
  Serious: Yes (Hospitalization, Other)
  Sender: FDA-Public Use
  Company Number: TR-JNJFOC-20190939249

PATIENT
  Age: 102 Month
  Sex: Male

DRUGS (1)
  1. CONCERTA [Suspect]
     Active Substance: METHYLPHENIDATE HYDROCHLORIDE
     Indication: ATTENTION DEFICIT HYPERACTIVITY DISORDER
     Dosage: MAXIMUM DOSE 60 MG
     Route: 048

REACTIONS (3)
  - Off label use [Unknown]
  - Precocious puberty [Not Recovered/Not Resolved]
  - Inappropriate schedule of product administration [Unknown]
